FAERS Safety Report 19213095 (Version 1)
Quarter: 2021Q2

REPORT INFORMATION
  Report Type: Spontaneous
  Country: US (occurrence: US)
  Receive Date: 20210504
  Receipt Date: 20210504
  Transmission Date: 20210717
  Serious: Yes (Death)
  Sender: FDA-Public Use
  Company Number: US-PFIZER INC-2021479340

PATIENT
  Age: 74 Year
  Sex: Male

DRUGS (6)
  1. LOVENOX [LEVOFLOXACIN] [Suspect]
     Active Substance: LEVOFLOXACIN
     Indication: THROMBOSIS PROPHYLAXIS
     Dosage: UNK
  2. AZITHROMYCIN ANHYDROUS. [Concomitant]
     Active Substance: AZITHROMYCIN ANHYDROUS
     Indication: EVIDENCE BASED TREATMENT
     Dosage: UNK
  3. HEPARIN SODIUM. [Suspect]
     Active Substance: HEPARIN SODIUM
     Indication: MESENTERIC ARTERY THROMBOSIS
     Dosage: UNK
     Route: 041
  4. AZITHROMYCIN ANHYDROUS. [Concomitant]
     Active Substance: AZITHROMYCIN ANHYDROUS
     Indication: COVID-19
  5. ROCEPHIN [Concomitant]
     Active Substance: CEFTRIAXONE SODIUM
     Indication: EVIDENCE BASED TREATMENT
     Dosage: UNK
  6. ROCEPHIN [Concomitant]
     Active Substance: CEFTRIAXONE SODIUM
     Indication: COVID-19

REACTIONS (1)
  - Drug ineffective [Fatal]
